FAERS Safety Report 8760557 (Version 2)
Quarter: 2012Q4

REPORT INFORMATION
  Report Type: Spontaneous
  Country: DK (occurrence: None)
  Receive Date: 20120820
  Receipt Date: 20120827
  Transmission Date: 20130627
  Serious: Yes (Hospitalization, Other)
  Sender: FDA-Public Use
  Company Number: 2012MA010118

PATIENT
  Age: 49 Year
  Sex: Male
  Weight: 63 kg

DRUGS (12)
  1. IBUPROFEN CHILDRENS [Suspect]
     Indication: PAIN
     Dates: end: 20120509
  2. TELAPREVIR [Suspect]
     Route: 048
     Dates: start: 20120226, end: 20120509
  3. RIBAVIRIN [Concomitant]
  4. VIRAFERONPEG [Concomitant]
  5. DARBEPOETIN ALFA [Concomitant]
  6. METHADONE [Concomitant]
  7. SERETIDE [Concomitant]
  8. TIOTROPIUM [Concomitant]
  9. SALBUTAMOL [Concomitant]
  10. PARACETAMOL [Concomitant]
  11. MIRTAZAPINE [Concomitant]
  12. FORTISIP [Concomitant]

REACTIONS (4)
  - Anaemia [None]
  - Renal impairment [None]
  - Urinary tract infection [None]
  - Lower respiratory tract infection [None]
